FAERS Safety Report 14294831 (Version 9)
Quarter: 2018Q2

REPORT INFORMATION
  Report Type: Report from Study
  Country: BR (occurrence: BR)
  Receive Date: 20171218
  Receipt Date: 20180522
  Transmission Date: 20180711
  Serious: Yes (Hospitalization)
  Sender: FDA-Public Use
  Company Number: BR-ROCHE-2040385

PATIENT
  Age: 65 Year
  Sex: Female
  Weight: 80.2 kg

DRUGS (91)
  1. ATEZOLIZUMAB. [Suspect]
     Active Substance: ATEZOLIZUMAB
     Indication: COLORECTAL CANCER METASTATIC
     Dosage: DATE OF MOST RECENT DOSE PRIOR TO EVENT ONSET ON 27/NOV/2017 AT 13:20
     Route: 042
     Dates: start: 20171127
  2. ATENOLOL. [Concomitant]
     Active Substance: ATENOLOL
     Route: 065
     Dates: start: 20170817, end: 20171211
  3. FOLIC ACID. [Concomitant]
     Active Substance: FOLIC ACID
     Indication: ANAEMIA
     Route: 065
     Dates: start: 20170926, end: 20171211
  4. OMEPRAZOLE. [Concomitant]
     Active Substance: OMEPRAZOLE
     Dosage: PROPHYLAXIS OF DYSPEPSIA
     Route: 065
     Dates: start: 20171212, end: 20171216
  5. PARACETAMOL [Concomitant]
     Active Substance: ACETAMINOPHEN
     Route: 065
     Dates: start: 20171215, end: 20171215
  6. CODEINE [Concomitant]
     Active Substance: CODEINE
     Route: 065
     Dates: start: 20180214, end: 20180219
  7. DROPROPIZINE [Concomitant]
     Active Substance: DROPROPIZINE
     Indication: LUNG INFECTION
     Route: 065
     Dates: start: 20180210, end: 20180217
  8. KETOPROFEN. [Concomitant]
     Active Substance: KETOPROFEN
     Route: 065
     Dates: start: 20180228, end: 20180313
  9. LORATADINE. [Concomitant]
     Active Substance: LORATADINE
     Indication: COUGH
     Route: 065
     Dates: start: 20180219, end: 20180223
  10. SALINE [Concomitant]
     Active Substance: SODIUM CHLORIDE
     Route: 065
     Dates: start: 20180427, end: 20180427
  11. COBIMETINIB. [Suspect]
     Active Substance: COBIMETINIB
     Indication: COLORECTAL CANCER METASTATIC
     Dosage: DATE OF MOST RECENT DOSE PRIOR TO EVENT ONSET ON 11/DEC/2017?INTERRUPTED ON 12/DEC/2017
     Route: 048
     Dates: start: 20171127
  12. CALCIUM CHLORIDE. [Concomitant]
     Active Substance: CALCIUM CHLORIDE
     Dosage: 1 AMPULE PRE/POST CHEMOTHERAPY
     Route: 065
     Dates: start: 20170719, end: 20170719
  13. METHADONE [Concomitant]
     Active Substance: METHADONE HYDROCHLORIDE
     Indication: NEURALGIA
     Route: 065
     Dates: start: 20170619, end: 20170625
  14. METHADONE [Concomitant]
     Active Substance: METHADONE HYDROCHLORIDE
     Indication: BONE PAIN
  15. OMEPRAZOLE. [Concomitant]
     Active Substance: OMEPRAZOLE
     Route: 065
     Dates: start: 20170812, end: 20170815
  16. PARACETAMOL [Concomitant]
     Active Substance: ACETAMINOPHEN
     Route: 065
     Dates: start: 20171219, end: 20180213
  17. ALLOPURINOL. [Concomitant]
     Active Substance: ALLOPURINOL
     Route: 065
     Dates: start: 20171212, end: 20171213
  18. ACETYLCYSTEINE. [Concomitant]
     Active Substance: ACETYLCYSTEINE
     Indication: LUNG INFECTION
     Route: 065
     Dates: start: 20180210, end: 20180217
  19. FLAGYL [Concomitant]
     Active Substance: METRONIDAZOLE\METRONIDAZOLE HYDROCHLORIDE
     Dosage: PROPHYLAXIS OF FEBRILE NEUTROPENIA
     Route: 065
     Dates: start: 20170811, end: 20170812
  20. ATENOLOL. [Concomitant]
     Active Substance: ATENOLOL
     Route: 065
     Dates: start: 20171213, end: 20171217
  21. FERROUS SULFATE. [Concomitant]
     Active Substance: FERROUS SULFATE
     Indication: ANAEMIA
     Dosage: 2 TABLESPOONS
     Route: 065
     Dates: start: 20170926, end: 20171211
  22. MAGNESIUM SULPHATE [Concomitant]
     Active Substance: MAGNESIUM SULFATE
     Dosage: 1 AMPULE PRE/POST CHEMOTHERAPY
     Route: 065
     Dates: start: 20170719, end: 20170719
  23. OMEPRAZOLE. [Concomitant]
     Active Substance: OMEPRAZOLE
     Dosage: PRE CHEMOTHERAPY
     Route: 065
     Dates: start: 20171213, end: 20171217
  24. PARACETAMOL [Concomitant]
     Active Substance: ACETAMINOPHEN
     Route: 065
     Dates: start: 20180214, end: 20180219
  25. PARACETAMOL [Concomitant]
     Active Substance: ACETAMINOPHEN
     Route: 065
     Dates: start: 20171218, end: 20171218
  26. ALLOPURINOL. [Concomitant]
     Active Substance: ALLOPURINOL
     Route: 065
     Dates: start: 20180122, end: 20180128
  27. FLAGYL [Concomitant]
     Active Substance: METRONIDAZOLE\METRONIDAZOLE HYDROCHLORIDE
     Route: 065
     Dates: start: 20170816
  28. ATENOLOL. [Concomitant]
     Active Substance: ATENOLOL
     Route: 065
     Dates: start: 2012, end: 20171211
  29. ATENOLOL. [Concomitant]
     Active Substance: ATENOLOL
     Route: 065
     Dates: start: 2012, end: 20170810
  30. LOSARTAN. [Concomitant]
     Active Substance: LOSARTAN
     Route: 065
     Dates: start: 20171219
  31. MAREVAN [Concomitant]
     Active Substance: WARFARIN SODIUM
     Route: 065
     Dates: start: 20170814, end: 20170814
  32. ZOFRAN [Concomitant]
     Active Substance: ONDANSETRON HYDROCHLORIDE
     Indication: PROPHYLAXIS OF NAUSEA AND VOMITING
     Dosage: PRE-CHEMOTHERAPY
     Route: 065
     Dates: start: 20170620, end: 20171030
  33. BETAMETHASONE. [Concomitant]
     Active Substance: BETAMETHASONE
     Indication: RASH
     Dosage: 3 TBSP
     Route: 065
     Dates: start: 20171227, end: 20171231
  34. CALCIUM CHLORIDE. [Concomitant]
     Active Substance: CALCIUM CHLORIDE
     Dosage: 1 AMPULE PRE CHEMOTHERAPY AND 1 AMPULE POST CHEMOTHERAPY
     Route: 065
     Dates: start: 20170719, end: 20170719
  35. CODEINE [Concomitant]
     Active Substance: CODEINE
     Route: 065
     Dates: start: 20180220, end: 20180319
  36. DAFLON [Concomitant]
     Route: 065
     Dates: start: 20180215
  37. FLAGYL [Concomitant]
     Active Substance: METRONIDAZOLE\METRONIDAZOLE HYDROCHLORIDE
     Dosage: PROPHYLAXIS OF FEBRILE NEUTROPENIA
     Route: 065
     Dates: start: 20170815, end: 20170816
  38. MORPHINE [Concomitant]
     Active Substance: MORPHINE
     Route: 065
     Dates: start: 20180402, end: 20180405
  39. MORPHINE [Concomitant]
     Active Substance: MORPHINE
     Route: 065
     Dates: start: 20180406
  40. ATENOLOL. [Concomitant]
     Active Substance: ATENOLOL
     Route: 065
     Dates: start: 20171218, end: 20171218
  41. ATENOLOL. [Concomitant]
     Active Substance: ATENOLOL
     Route: 065
     Dates: start: 20170811, end: 20170811
  42. ATENOLOL. [Concomitant]
     Active Substance: ATENOLOL
     Route: 065
     Dates: start: 20171213, end: 20171214
  43. CALCIUM CHLORIDE. [Concomitant]
     Active Substance: CALCIUM CHLORIDE
     Dosage: 1 AMPULE PRE/POST CHEMOTHERAPY
     Route: 065
     Dates: start: 20170620
  44. LOSARTAN. [Concomitant]
     Active Substance: LOSARTAN
     Route: 065
     Dates: start: 2007, end: 20170810
  45. LOSARTAN. [Concomitant]
     Active Substance: LOSARTAN
     Route: 065
     Dates: start: 20170814, end: 20171210
  46. MAGNESIUM SULPHATE [Concomitant]
     Active Substance: MAGNESIUM SULFATE
     Indication: FATIGUE
     Dosage: 1 AMPULE PRE/POST CHEMOTHERAPY
     Route: 065
     Dates: start: 20170705, end: 20170705
  47. MAREVAN [Concomitant]
     Active Substance: WARFARIN SODIUM
     Route: 065
     Dates: start: 20170816, end: 20171211
  48. OMEPRAZOLE. [Concomitant]
     Active Substance: OMEPRAZOLE
     Dosage: PRE-CHEMOTHERAPY
     Route: 065
     Dates: start: 20170620, end: 20171030
  49. ZOFRAN [Concomitant]
     Active Substance: ONDANSETRON HYDROCHLORIDE
     Route: 065
     Dates: start: 20171211, end: 20171211
  50. ALLOPURINOL. [Concomitant]
     Active Substance: ALLOPURINOL
     Route: 065
     Dates: start: 20171216, end: 20171217
  51. IMOSEC [Concomitant]
     Active Substance: LOPERAMIDE
     Indication: PROPHYLAXIS AGAINST DIARRHOEA
     Route: 065
     Dates: start: 20171212, end: 20171212
  52. CODEINE [Concomitant]
     Active Substance: CODEINE
     Route: 065
     Dates: start: 20180320
  53. FLAGYL [Concomitant]
     Active Substance: METRONIDAZOLE\METRONIDAZOLE HYDROCHLORIDE
     Dosage: PROPHYLAXIS OF FEBRILE NEUTROPENIA
     Route: 065
     Dates: start: 20170813, end: 20170814
  54. GABAPENTIN. [Concomitant]
     Active Substance: GABAPENTIN
     Indication: PAIN IN EXTREMITY
     Route: 065
     Dates: start: 20180302, end: 20180406
  55. LOSARTAN. [Concomitant]
     Active Substance: LOSARTAN
     Route: 065
     Dates: start: 20170811, end: 20170813
  56. MAGNESIUM SULPHATE [Concomitant]
     Active Substance: MAGNESIUM SULFATE
     Dosage: 2 AMPOULE
     Route: 065
     Dates: start: 20170815, end: 20170815
  57. MAREVAN [Concomitant]
     Active Substance: WARFARIN SODIUM
     Dosage: PROPHYLAXIS OF PULMONARY THROMBOEMBOLISM
     Route: 065
     Dates: start: 20171219
  58. MAREVAN [Concomitant]
     Active Substance: WARFARIN SODIUM
     Route: 065
     Dates: end: 20170811
  59. PARACETAMOL [Concomitant]
     Active Substance: ACETAMINOPHEN
     Route: 065
     Dates: start: 20171216, end: 20171216
  60. ZOFRAN [Concomitant]
     Active Substance: ONDANSETRON HYDROCHLORIDE
     Route: 065
     Dates: start: 20171212, end: 20171214
  61. ZOFRAN [Concomitant]
     Active Substance: ONDANSETRON HYDROCHLORIDE
     Route: 065
     Dates: start: 20171215, end: 20171215
  62. ALLOPURINOL. [Concomitant]
     Active Substance: ALLOPURINOL
     Indication: PROPHYLAXIS
     Dosage: PROPHYLAXIS OF HYPERURICEMIA
     Route: 065
     Dates: start: 20171218, end: 20171218
  63. ALLOPURINOL. [Concomitant]
     Active Substance: ALLOPURINOL
     Route: 065
     Dates: start: 20171214, end: 20171215
  64. IMOSEC [Concomitant]
     Active Substance: LOPERAMIDE
     Indication: FATIGUE
     Route: 065
     Dates: start: 20171205, end: 20171210
  65. CALCIUM CHLORIDE. [Concomitant]
     Active Substance: CALCIUM CHLORIDE
     Dosage: 1 AMPULE PRE CHEMOTHERAPY AND 1 AMPULE POST CHEMOTHERAPY
     Route: 065
     Dates: start: 20170620, end: 20170620
  66. CODEINE [Concomitant]
     Active Substance: CODEINE
     Indication: PAIN IN EXTREMITY
     Route: 065
     Dates: start: 20180207, end: 20180213
  67. FLAGYL [Concomitant]
     Active Substance: METRONIDAZOLE\METRONIDAZOLE HYDROCHLORIDE
     Indication: PROPHYLAXIS
     Dosage: PROPHYLAXIS OF FEBRILE NEUTROPENIA
     Route: 065
     Dates: start: 20170810, end: 20170810
  68. ATENOLOL. [Concomitant]
     Active Substance: ATENOLOL
     Route: 065
     Dates: start: 20171212, end: 20171212
  69. CALCIUM CHLORIDE. [Concomitant]
     Active Substance: CALCIUM CHLORIDE
     Dosage: 1 AMPULE PRE/POST CHEMOTHERAPY
     Route: 065
     Dates: start: 20170705, end: 20170705
  70. MAGNESIUM SULPHATE [Concomitant]
     Active Substance: MAGNESIUM SULFATE
     Dosage: 1 AMPULE PRE/POST CHEMOTHERAPY
     Route: 065
     Dates: start: 20170620
  71. MAREVAN [Concomitant]
     Active Substance: WARFARIN SODIUM
     Dosage: PROPHYLAXIS OF PULMONARY THROMBOEMBOLISM
     Route: 065
     Dates: start: 20171212, end: 20171212
  72. MAREVAN [Concomitant]
     Active Substance: WARFARIN SODIUM
     Dosage: PROPHYLAXIS OF PULMONARY THROMBOEMBOLISM
     Route: 065
     Dates: start: 20171215, end: 20171215
  73. METHADONE [Concomitant]
     Active Substance: METHADONE HYDROCHLORIDE
     Indication: PAIN IN EXTREMITY
     Route: 065
     Dates: start: 20171118, end: 20171119
  74. PARACETAMOL [Concomitant]
     Active Substance: ACETAMINOPHEN
     Route: 065
     Dates: start: 20171217, end: 20171217
  75. ALLOPURINOL. [Concomitant]
     Active Substance: ALLOPURINOL
     Indication: BLOOD CREATINE PHOSPHOKINASE INCREASED
     Route: 065
     Dates: start: 20171214, end: 20171214
  76. ALLOPURINOL. [Concomitant]
     Active Substance: ALLOPURINOL
     Route: 065
     Dates: start: 20171211, end: 20171211
  77. CIPROFLOXACIN. [Concomitant]
     Active Substance: CIPROFLOXACIN
     Indication: URINARY TRACT INFECTION
     Route: 065
     Dates: start: 20171218, end: 20171225
  78. HYDROXYZINE [Concomitant]
     Active Substance: HYDROXYZINE HYDROCHLORIDE
     Route: 065
     Dates: start: 20171227, end: 20171231
  79. LEVOFLOXACIN. [Concomitant]
     Active Substance: LEVOFLOXACIN
     Indication: LUNG INFECTION
     Route: 065
     Dates: start: 20180210, end: 20180217
  80. COBIMETINIB. [Suspect]
     Active Substance: COBIMETINIB
     Route: 048
     Dates: start: 20171226
  81. ATENOLOL. [Concomitant]
     Active Substance: ATENOLOL
     Route: 065
     Dates: start: 20171219
  82. MAREVAN [Concomitant]
     Active Substance: WARFARIN SODIUM
     Dosage: PROPHYLAXIS OF PULMONARY THROMBOEMBOLISM
     Route: 065
     Dates: end: 20171211
  83. PARACETAMOL [Concomitant]
     Active Substance: ACETAMINOPHEN
     Indication: PAIN IN EXTREMITY
     Dosage: PAIN IN EXTREMITY
     Route: 065
     Dates: start: 20171118, end: 20171124
  84. PARACETAMOL [Concomitant]
     Active Substance: ACETAMINOPHEN
     Indication: FATIGUE
     Dosage: NEUROPATHIC PAIN IN LUMBAR REGION?BONE PAIN IN LUMBAR REGION
     Route: 065
     Dates: start: 20170811, end: 20170811
  85. PARACETAMOL [Concomitant]
     Active Substance: ACETAMINOPHEN
     Dosage: PAIN IN EXTREMITY
     Route: 065
     Dates: start: 20171125, end: 20171211
  86. PARACETAMOL [Concomitant]
     Active Substance: ACETAMINOPHEN
     Route: 065
     Dates: start: 20180402, end: 20180406
  87. PARACETAMOL [Concomitant]
     Active Substance: ACETAMINOPHEN
     Route: 065
     Dates: start: 20180320
  88. ALLOPURINOL. [Concomitant]
     Active Substance: ALLOPURINOL
     Indication: FATIGUE
     Route: 065
     Dates: start: 20171215, end: 20171215
  89. CALCIUM CHLORIDE. [Concomitant]
     Active Substance: CALCIUM CHLORIDE
     Dosage: 1 AMPULE PRE CHEMOTHERAPY AND 1 AMPULE POST CHEMOTHERAPY
     Route: 065
     Dates: start: 20170705, end: 20170705
  90. FLAGYL [Concomitant]
     Active Substance: METRONIDAZOLE\METRONIDAZOLE HYDROCHLORIDE
     Route: 065
     Dates: start: 20170811, end: 20170815
  91. VITAMIN B COMPLEX [Concomitant]
     Active Substance: CYANOCOBALAMIN\DEXPANTHENOL\NIACINAMIDE\PYRIDOXINE HYDROCHLORIDE\RIBOFLAVIN 5^-PHOSPHATE SODIUM\THIAMINE HYDROCHLORIDE\VITAMIN B COMPLEX
     Route: 065
     Dates: start: 20180427, end: 20180427

REACTIONS (1)
  - Blood creatine phosphokinase increased [Recovered/Resolved]

NARRATIVE: CASE EVENT DATE: 20171211
